FAERS Safety Report 15089654 (Version 1)
Quarter: 2018Q2

REPORT INFORMATION
  Report Type: Spontaneous
  Country: US (occurrence: US)
  Receive Date: 20180629
  Receipt Date: 20180629
  Transmission Date: 20180711
  Serious: Yes (Other)
  Sender: FDA-Public Use
  Company Number: US-BRACCO-2018US03313

PATIENT
  Age: 53 Year
  Sex: Female

DRUGS (2)
  1. LEVOTHYROXINE. [Concomitant]
     Active Substance: LEVOTHYROXINE
     Indication: HYPOTHYROIDISM
     Dosage: UNK
     Dates: start: 2012
  2. SODIUM IODIDE I 131 [Suspect]
     Active Substance: SODIUM IODIDE I-131
     Indication: HYPOTHYROIDISM
     Dosage: UNK
     Dates: start: 2012, end: 2012

REACTIONS (1)
  - Keratoconus [Recovered/Resolved]

NARRATIVE: CASE EVENT DATE: 2013
